FAERS Safety Report 16992055 (Version 2)
Quarter: 2020Q1

REPORT INFORMATION
  Report Type: Spontaneous
  Country: NL (occurrence: NL)
  Receive Date: 20191105
  Receipt Date: 20200212
  Transmission Date: 20200409
  Serious: Yes (Other)
  Sender: FDA-Public Use
  Company Number: NL-SUN PHARMACEUTICAL INDUSTRIES LTD-2019RR-226565

PATIENT
  Sex: Male
  Weight: 68 kg

DRUGS (1)
  1. ATORVASTATIN [Suspect]
     Active Substance: ATORVASTATIN
     Indication: BLOOD CHOLESTEROL
     Dosage: 1 MAAL PER DAG
     Route: 050
     Dates: start: 20190618, end: 20190906

REACTIONS (2)
  - Dysphagia [Recovering/Resolving]
  - Multiple sclerosis [Recovering/Resolving]
